FAERS Safety Report 18057020 (Version 2)
Quarter: 2021Q1

REPORT INFORMATION
  Report Type: Spontaneous
  Country: US (occurrence: US)
  Receive Date: 20200722
  Receipt Date: 20210224
  Transmission Date: 20210419
  Serious: Yes (Hospitalization, Other)
  Sender: FDA-Public Use
  Company Number: US-GILEAD-2020-0484454

PATIENT
  Age: 33 Year
  Sex: Male
  Weight: 88.44 kg

DRUGS (20)
  1. COMBIVIR [Concomitant]
     Active Substance: LAMIVUDINE\ZIDOVUDINE
  2. EPIVIR [Concomitant]
     Active Substance: LAMIVUDINE
  3. ALDARA [Concomitant]
     Active Substance: IMIQUIMOD
  4. VANCOMYCIN [Concomitant]
     Active Substance: VANCOMYCIN
  5. LEVAQUIN [Concomitant]
     Active Substance: LEVOFLOXACIN
  6. TRUVADA [Suspect]
     Active Substance: EMTRICITABINE\TENOFOVIR DISOPROXIL FUMARATE
     Dosage: UNK
     Route: 048
     Dates: start: 2006
  7. SUSTIVA [Concomitant]
     Active Substance: EFAVIRENZ
  8. NORVIR [Concomitant]
     Active Substance: RITONAVIR
  9. AZASITE [Concomitant]
     Active Substance: AZITHROMYCIN MONOHYDRATE
  10. COMPLERA [Suspect]
     Active Substance: EMTRICITABINE\RILPIVIRINE HYDROCHLORIDE\TENOFOVIR DISOPROXIL FUMARATE
     Indication: HIV INFECTION
     Dosage: UNK
     Route: 065
     Dates: start: 20120904, end: 20131119
  11. ACYCLOVIR [ACICLOVIR] [Concomitant]
     Active Substance: ACYCLOVIR
  12. AZTREONAM. [Concomitant]
     Active Substance: AZTREONAM
  13. TRUVADA [Suspect]
     Active Substance: EMTRICITABINE\TENOFOVIR DISOPROXIL FUMARATE
     Indication: HIV INFECTION
     Dosage: UNK
     Route: 065
     Dates: start: 20050630, end: 20061030
  14. ATRIPLA [Suspect]
     Active Substance: EFAVIRENZ\EMTRICITABINE\TENOFOVIR DISOPROXIL FUMARATE
     Dosage: UNK
     Route: 048
     Dates: start: 2006
  15. ADVIL [Concomitant]
     Active Substance: IBUPROFEN
  16. ATRIPLA [Suspect]
     Active Substance: EFAVIRENZ\EMTRICITABINE\TENOFOVIR DISOPROXIL FUMARATE
     Indication: HIV INFECTION
     Dosage: UNK
     Route: 065
     Dates: start: 20061121, end: 20110813
  17. COMPLERA [Suspect]
     Active Substance: EMTRICITABINE\RILPIVIRINE HYDROCHLORIDE\TENOFOVIR DISOPROXIL FUMARATE
     Dosage: UNK
     Route: 048
     Dates: start: 2006
  18. VIREAD [Suspect]
     Active Substance: TENOFOVIR DISOPROXIL FUMARATE
     Indication: HIV INFECTION
     Dosage: UNK
     Route: 065
     Dates: start: 20040120, end: 20050519
  19. ABACAVIR. [Concomitant]
     Active Substance: ABACAVIR
  20. TIVICAY [Concomitant]
     Active Substance: DOLUTEGRAVIR SODIUM

REACTIONS (13)
  - Bone density decreased [Not Recovered/Not Resolved]
  - Quality of life decreased [Unknown]
  - Pain [Not Recovered/Not Resolved]
  - Emotional distress [Not Recovered/Not Resolved]
  - Blood creatinine increased [Unknown]
  - Decreased activity [Unknown]
  - Renal disorder [Unknown]
  - Renal failure [Not Recovered/Not Resolved]
  - Loss of personal independence in daily activities [Unknown]
  - Chronic kidney disease [Not Recovered/Not Resolved]
  - Anxiety [Not Recovered/Not Resolved]
  - Anhedonia [Not Recovered/Not Resolved]
  - Fatigue [Unknown]

NARRATIVE: CASE EVENT DATE: 20090212
